FAERS Safety Report 14333095 (Version 2)
Quarter: 2018Q2

REPORT INFORMATION
  Report Type: Spontaneous
  Country: US (occurrence: US)
  Receive Date: 20171228
  Receipt Date: 20180619
  Transmission Date: 20180711
  Serious: Yes (Hospitalization, Disabling)
  Sender: FDA-Public Use
  Company Number: US-JNJFOC-20171234698

PATIENT
  Age: 54 Year
  Sex: Female

DRUGS (2)
  1. GLUMETZA [Suspect]
     Active Substance: METFORMIN HYDROCHLORIDE
     Indication: PRODUCT USED FOR UNKNOWN INDICATION
     Route: 048
     Dates: end: 20170327
  2. INVOKANA [Suspect]
     Active Substance: CANAGLIFLOZIN
     Indication: TYPE 2 DIABETES MELLITUS
     Route: 048
     Dates: start: 20150903, end: 20170327

REACTIONS (5)
  - Ischaemic skin ulcer [Unknown]
  - Diabetic foot [Unknown]
  - Diabetic foot infection [Unknown]
  - Gangrene [Unknown]
  - Foot amputation [Unknown]

NARRATIVE: CASE EVENT DATE: 201702
